FAERS Safety Report 12179753 (Version 1)
Quarter: 2016Q1

REPORT INFORMATION
  Report Type: Spontaneous
  Country: US (occurrence: None)
  Receive Date: 20160314
  Receipt Date: 20160314
  Transmission Date: 20160526
  Serious: Yes (Other)
  Sender: FDA-Public Use
  Company Number: None

PATIENT
  Age: 30 Year
  Sex: Female
  Weight: 79.38 kg

DRUGS (1)
  1. MIRENA [Suspect]
     Active Substance: LEVONORGESTREL
     Indication: CONTRACEPTION

REACTIONS (9)
  - Headache [None]
  - Device expulsion [None]
  - Ovarian cyst [None]
  - Device dislocation [None]
  - Device issue [None]
  - Back pain [None]
  - Device difficult to use [None]
  - Uterine spasm [None]
  - Abdominal distension [None]
